FAERS Safety Report 8406935-7 (Version None)
Quarter: 2012Q2

REPORT INFORMATION
  Report Type: 
  Country: None (occurrence: None)
  Receive Date: 20120604
  Receipt Date: 20120530
  Transmission Date: 20120825
  Serious: Yes (Death, Hospitalization)
  Sender: FDA-Public Use
  Company Number: FR-PFIZER INC-2012129869

PATIENT
  Age: 71 Year
  Sex: Female

DRUGS (14)
  1. KETAMINE [Concomitant]
  2. MODANE [Concomitant]
  3. PREDNISOLONE [Concomitant]
  4. SUTENT [Suspect]
     Indication: RENAL CANCER
     Dosage: 50 MG, 1X/DAY
     Dates: start: 20090119
  5. ORBENIN CAP [Concomitant]
     Dosage: 500 MG, UNK
  6. CLONAZEPAM [Concomitant]
  7. SUTENT [Suspect]
     Dosage: 50 MG, 1X/DAY
     Dates: start: 20090803, end: 20090812
  8. POLYETHYLENE GLYCOL [Concomitant]
  9. OFLOXACIN [Concomitant]
  10. OMEPRAZOLE [Concomitant]
     Dosage: 20 MG, UNK
  11. KETOPROFEN [Concomitant]
  12. DURAGESIC-100 [Concomitant]
  13. LYRICA [Concomitant]
  14. ACETAMINOPHEN [Concomitant]
     Dosage: 1 G, UNK

REACTIONS (2)
  - DEATH [None]
  - SHOCK HAEMORRHAGIC [None]
